FAERS Safety Report 14903142 (Version 1)
Quarter: 2018Q2

REPORT INFORMATION
  Report Type: Spontaneous
  Country: US (occurrence: US)
  Receive Date: 20180516
  Receipt Date: 20180516
  Transmission Date: 20180711
  Serious: Yes (Hospitalization)
  Sender: FDA-Public Use
  Company Number: US-SA-2017SA112697

PATIENT
  Sex: Female

DRUGS (1)
  1. LANTUS [Suspect]
     Active Substance: INSULIN GLARGINE
     Indication: TYPE 2 DIABETES MELLITUS
     Route: 051
     Dates: start: 200805

REACTIONS (8)
  - Pharyngeal oedema [Unknown]
  - Pruritus [Unknown]
  - Mouth swelling [Unknown]
  - Urticaria [Unknown]
  - Blood glucose increased [Recovered/Resolved]
  - Loss of consciousness [Unknown]
  - Hypersensitivity [Unknown]
  - Throat tightness [Unknown]

NARRATIVE: CASE EVENT DATE: 200805
